FAERS Safety Report 17817641 (Version 1)
Quarter: 2020Q2

REPORT INFORMATION
  Report Type: Spontaneous
  Country: AU (occurrence: AU)
  Receive Date: 20200522
  Receipt Date: 20200522
  Transmission Date: 20200714
  Serious: Yes (Other)
  Sender: FDA-Public Use
  Company Number: NVSC2020AU139614

PATIENT
  Age: 38 Year
  Sex: Female

DRUGS (2)
  1. GILENYA [Suspect]
     Active Substance: FINGOLIMOD HYDROCHLORIDE
     Indication: PRODUCT USED FOR UNKNOWN INDICATION
     Dosage: UNK
     Route: 065
  2. IBUPROFEN. [Suspect]
     Active Substance: IBUPROFEN
     Indication: PRODUCT USED FOR UNKNOWN INDICATION
     Dosage: UNK
     Route: 065

REACTIONS (10)
  - Photophobia [Unknown]
  - Fatigue [Unknown]
  - Cough [Unknown]
  - Infection [Unknown]
  - Headache [Unknown]
  - Wheezing [Unknown]
  - Nausea [Unknown]
  - Lower respiratory tract infection [Unknown]
  - Vision blurred [Unknown]
  - White blood cell count decreased [Unknown]
